FAERS Safety Report 17307985 (Version 1)
Quarter: 2020Q1

REPORT INFORMATION
  Report Type: Report from Study
  Country: DE (occurrence: DE)
  Receive Date: 20200123
  Receipt Date: 20200123
  Transmission Date: 20200409
  Serious: Yes (Congenital Anomaly)
  Sender: FDA-Public Use
  Company Number: DE-ASTRAZENECA-2020SE04093

PATIENT
  Sex: Female

DRUGS (5)
  1. BUDESONIDE. [Suspect]
     Active Substance: BUDESONIDE
     Route: 064
  2. AMOXICILLIN. [Suspect]
     Active Substance: AMOXICILLIN
     Route: 064
  3. PARACETAMOL [Suspect]
     Active Substance: ACETAMINOPHEN
     Indication: PAIN
     Route: 064
  4. ACICLOVIR [Suspect]
     Active Substance: ACYCLOVIR
     Route: 064
  5. SALBUTAMOL [Suspect]
     Active Substance: ALBUTEROL
     Route: 064

REACTIONS (3)
  - Atrial septal defect [Unknown]
  - Congenital tricuspid valve incompetence [Unknown]
  - Patent ductus arteriosus [Unknown]
